FAERS Safety Report 10153424 (Version 1)
Quarter: 2014Q2

REPORT INFORMATION
  Report Type: Spontaneous
  Country: US (occurrence: US)
  Receive Date: 20140505
  Receipt Date: 20140505
  Transmission Date: 20141212
  Serious: No
  Sender: FDA-Public Use
  Company Number: US-ASTRAZENECA-2013SE49736

PATIENT
  Age: 42 Year
  Sex: Female
  Weight: 90.7 kg

DRUGS (8)
  1. PRILOSEC [Suspect]
     Indication: GASTRITIS
     Route: 048
     Dates: start: 2010
  2. PRILOSEC [Suspect]
     Indication: GASTROOESOPHAGEAL REFLUX DISEASE
     Route: 048
     Dates: start: 2010
  3. PRILOSEC [Suspect]
     Indication: GASTRITIS
     Route: 048
  4. PRILOSEC [Suspect]
     Indication: GASTROOESOPHAGEAL REFLUX DISEASE
     Route: 048
  5. PRILOSEC OTC [Suspect]
     Indication: GASTRITIS
     Route: 048
  6. ROLAIDS [Concomitant]
  7. TUMS [Concomitant]
  8. PEPTO [Concomitant]

REACTIONS (7)
  - Gastritis [Unknown]
  - Adverse event [Unknown]
  - Malaise [Unknown]
  - Dyspepsia [Unknown]
  - Abdominal pain upper [Unknown]
  - Intentional product misuse [Unknown]
  - Drug dose omission [Unknown]
